FAERS Safety Report 6041186-5 (Version None)
Quarter: 2009Q1

REPORT INFORMATION
  Report Type: 
  Country: None (occurrence: None)
  Receive Date: 20090116
  Receipt Date: 20080912
  Transmission Date: 20090719
  Serious: No
  Sender: FDA-Public Use
  Company Number: US-BRISTOL-MYERS SQUIBB COMPANY-14334064

PATIENT
  Age: 49 Year
  Sex: Female
  Weight: 76 kg

DRUGS (6)
  1. ABILIFY [Suspect]
     Indication: BIPOLAR DISORDER
     Dosage: INITIAL DOSE NOT SPECIFIED + DISCONTINUED,RESTARTED-5MG QD + INCREASED TO 10MG + DECREASED TO 5MG QD
  2. HYDROCHLOROTHIAZIDE [Suspect]
  3. LAMICTAL [Concomitant]
  4. LIPITOR [Concomitant]
  5. ASPIRIN [Concomitant]
  6. LAMISIL [Concomitant]
     Dates: start: 20080101

REACTIONS (5)
  - CARDIAC FLUTTER [None]
  - CONSTIPATION [None]
  - DRY MOUTH [None]
  - DYSPHAGIA [None]
  - VISION BLURRED [None]
